FAERS Safety Report 5565157-8 (Version None)
Quarter: 2007Q4

REPORT INFORMATION
  Report Type: 
  Country: None (occurrence: None)
  Receive Date: 20071213
  Receipt Date: 20071206
  Transmission Date: 20080405
  Serious: Yes (Other)
  Sender: FDA-Public Use
  Company Number: CHPA2007US13358

PATIENT
  Sex: Female

DRUGS (2)
  1. EXCEDRIN (MIGRAINE) [Suspect]
     Indication: HEADACHE
     Dosage: 1-2 DF, QD, ORAL
     Route: 048
  2. KLONOPIN [Concomitant]

REACTIONS (2)
  - DRUG DEPENDENCE [None]
  - RESTLESS LEGS SYNDROME [None]
